FAERS Safety Report 13511911 (Version 1)
Quarter: 2017Q2

REPORT INFORMATION
  Report Type: Spontaneous
  Country: US (occurrence: US)
  Receive Date: 20170504
  Receipt Date: 20170504
  Transmission Date: 20170830
  Serious: Yes (Hospitalization)
  Sender: FDA-Public Use
  Company Number: US-B.I. PHARMACEUTICALS,INC./RIDGEFIELD-2017-BI-024502

PATIENT
  Age: 89 Year
  Sex: Female

DRUGS (2)
  1. VERAPAMIL [Concomitant]
     Active Substance: VERAPAMIL HYDROCHLORIDE
     Indication: HYPERTENSION
     Route: 048
  2. DULCOLAX (BISACODYL) [Suspect]
     Active Substance: BISACODYL
     Indication: CONSTIPATION
     Route: 048
     Dates: start: 2016

REACTIONS (6)
  - Cardiac disorder [Recovered/Resolved]
  - Emergency care [Recovered/Resolved]
  - Drug ineffective [Not Recovered/Not Resolved]
  - Loss of consciousness [Recovered/Resolved]
  - Hallucination [Recovered/Resolved]
  - Diarrhoea [Recovered/Resolved]

NARRATIVE: CASE EVENT DATE: 201611
